FAERS Safety Report 6495983-2 (Version None)
Quarter: 2009Q4

REPORT INFORMATION
  Report Type: 
  Country: None (occurrence: None)
  Receive Date: 20091214
  Receipt Date: 20090910
  Transmission Date: 20100525
  Serious: No
  Sender: FDA-Public Use
  Company Number: US-BRISTOL-MYERS SQUIBB COMPANY-14774558

PATIENT
  Age: 33 Year
  Sex: Female

DRUGS (2)
  1. ABILIFY [Suspect]
     Indication: ANXIETY
     Dosage: INITIAL DOSE:2 MG AND THEN INCREASED TO 5 MG
  2. ABILIFY [Suspect]
     Indication: PANIC ATTACK
     Dosage: INITIAL DOSE:2 MG AND THEN INCREASED TO 5 MG

REACTIONS (3)
  - FORMICATION [None]
  - NASOPHARYNGITIS [None]
  - PARANOIA [None]
